FAERS Safety Report 16107066 (Version 2)
Quarter: 2019Q2

REPORT INFORMATION
  Report Type: Report from Study
  Country: FR (occurrence: FR)
  Receive Date: 20190322
  Receipt Date: 20190408
  Transmission Date: 20190711
  Serious: Yes (Death, Hospitalization)
  Sender: FDA-Public Use
  Company Number: FR-MYLANLABS-2019M1026430

PATIENT
  Sex: Female
  Weight: 58 kg

DRUGS (6)
  1. ATOVAQUONE. [Concomitant]
     Active Substance: ATOVAQUONE
     Dosage: 5 MILLILITER
     Route: 048
  2. LENALIDOMIDE [Suspect]
     Active Substance: LENALIDOMIDE
     Indication: PLASMA CELL MYELOMA
     Dosage: UNK
     Route: 065
     Dates: start: 20180606
  3. ZARZIO [Concomitant]
     Active Substance: FILGRASTIM
     Dosage: UNK
     Route: 065
  4. IXAZOMIB [Suspect]
     Active Substance: IXAZOMIB
     Indication: PLASMA CELL MYELOMA
     Dosage: UNK
     Route: 065
     Dates: start: 20180606
  5. DEXAMETHASONE. [Suspect]
     Active Substance: DEXAMETHASONE
     Indication: PLASMA CELL MYELOMA
     Dosage: 20 MILLIGRAM
     Route: 065
  6. ZELITREX [Concomitant]
     Active Substance: VALACYCLOVIR HYDROCHLORIDE
     Indication: PROPHYLAXIS
     Dosage: 500 MILLIGRAM
     Route: 048

REACTIONS (14)
  - Lung disorder [Recovered/Resolved]
  - Dyspnoea [Unknown]
  - General physical health deterioration [Fatal]
  - Cough [Unknown]
  - Angina bullosa haemorrhagica [Unknown]
  - Ecchymosis [Unknown]
  - Pyrexia [Recovered/Resolved]
  - Dry mouth [Unknown]
  - Petechiae [Unknown]
  - Skin mass [Unknown]
  - Bicytopenia [Unknown]
  - Fungal infection [Unknown]
  - Mucosal discolouration [Unknown]
  - Weight decreased [Unknown]

NARRATIVE: CASE EVENT DATE: 20180703
